FAERS Safety Report 8839335 (Version 1)
Quarter: 2012Q4

REPORT INFORMATION
  Report Type: Spontaneous
  Country: US (occurrence: None)
  Receive Date: 20121011
  Receipt Date: 20121011
  Transmission Date: 20130627
  Serious: No
  Sender: FDA-Public Use
  Company Number: None

PATIENT
  Age: 64 Year
  Sex: Female
  Weight: 77.11 kg

DRUGS (1)
  1. ZOLPIDEM [Suspect]
     Indication: SLEEPLESSNESS
     Dosage: one, nightly, po
     Route: 048
     Dates: start: 20120616, end: 20120916

REACTIONS (1)
  - Drug ineffective [None]
